FAERS Safety Report 6736278-9 (Version None)
Quarter: 2010Q2

REPORT INFORMATION
  Report Type: 
  Country: None (occurrence: None)
  Receive Date: 20100521
  Receipt Date: 20100511
  Transmission Date: 20101027
  Serious: Yes (Death, Life-Threatening, Hospitalization, Other)
  Sender: FDA-Public Use
  Company Number: MA-GENZYME-THYM-1001498

PATIENT
  Age: 16 Year
  Sex: Male
  Weight: 45 kg

DRUGS (13)
  1. THYMOGLOBULIN [Suspect]
     Indication: BONE MARROW FAILURE
     Dosage: 150 MG, QD
     Route: 042
     Dates: start: 20100420, end: 20100423
  2. ANTIEMETICS AND ANTINAUSEANTS [Concomitant]
     Indication: PREMEDICATION
     Dosage: UNK
     Dates: start: 20100401, end: 20100401
  3. SOLU-MEDROL [Concomitant]
     Indication: PREMEDICATION
     Dosage: UNK
     Dates: start: 20100401, end: 20100401
  4. PERFALGAN [Concomitant]
     Indication: PREMEDICATION
     Dosage: UNK
     Dates: start: 20100401, end: 20100401
  5. HISTAZYME [Concomitant]
     Indication: PREMEDICATION
     Dosage: UNK
     Dates: start: 20100401, end: 20100401
  6. CYCLOSPORINE [Concomitant]
     Indication: BONE MARROW FAILURE
     Dosage: 300 MG, QD
     Route: 065
     Dates: start: 20091201
  7. ROCEPHIN [Concomitant]
     Indication: ANTIBIOTIC THERAPY
     Dosage: 2 G, QD
     Route: 065
     Dates: start: 20100413
  8. TAVANIC [Concomitant]
     Indication: ANTIBIOTIC THERAPY
     Dosage: 500 MG, QD
     Route: 065
     Dates: start: 20100413
  9. VALIUM [Concomitant]
     Indication: CONVULSION
     Dosage: UNK
     Route: 065
  10. DEPAKENE [Concomitant]
     Indication: DRUG USE FOR UNKNOWN INDICATION
     Dosage: .5 UNK, BID
     Route: 065
     Dates: start: 20100421, end: 20100422
  11. DEPAKENE [Concomitant]
     Dosage: 1 DF, BID
     Dates: start: 20100423, end: 20100424
  12. URBANYL [Concomitant]
     Indication: DRUG USE FOR UNKNOWN INDICATION
     Dosage: .5 UNK, TID
     Route: 065
     Dates: start: 20100421, end: 20100424
  13. NEUPOGEN [Concomitant]
     Indication: DRUG USE FOR UNKNOWN INDICATION
     Dosage: 30 U, QD
     Route: 065

REACTIONS (17)
  - ABDOMINAL DISTENSION [None]
  - ALANINE AMINOTRANSFERASE INCREASED [None]
  - ANAPHYLACTIC SHOCK [None]
  - ASPARTATE AMINOTRANSFERASE [None]
  - BLOOD PRESSURE FLUCTUATION [None]
  - CEREBRAL HAEMORRHAGE [None]
  - COMA [None]
  - DIARRHOEA [None]
  - GENERALISED OEDEMA [None]
  - GRAND MAL CONVULSION [None]
  - HYPOCALCAEMIA [None]
  - HYPONATRAEMIA [None]
  - PYREXIA [None]
  - RENAL FAILURE [None]
  - SHOCK HAEMORRHAGIC [None]
  - THROMBOCYTOPENIA [None]
  - TONIC CONVULSION [None]
